FAERS Safety Report 9415739 (Version 1)
Quarter: 2013Q3

REPORT INFORMATION
  Report Type: Spontaneous
  Country: US (occurrence: US)
  Receive Date: 20130723
  Receipt Date: 20130723
  Transmission Date: 20140515
  Serious: Yes (Death, Other)
  Sender: FDA-Public Use
  Company Number: US-PFIZER INC-2013210594

PATIENT
  Age: 50 Year
  Sex: Female
  Weight: 56 kg

DRUGS (2)
  1. LEVOTHYROXINE SODIUM [Suspect]
     Dosage: 100 UG, 1X/DAY
  2. CHLOROTHIAZIDE [Suspect]
     Dosage: ONE OR TWO TABLETS EVERY SECOND OR THIRD DAY

REACTIONS (8)
  - Off label use [Fatal]
  - Ventricular fibrillation [Fatal]
  - Hyperthyroidism [Unknown]
  - Myocarditis [Unknown]
  - Drug abuse [Unknown]
  - Hypokalaemia [Unknown]
  - Chest pain [Unknown]
  - Sinus tachycardia [Unknown]
